FAERS Safety Report 20185252 (Version 1)
Quarter: 2021Q4

REPORT INFORMATION
  Report Type: Spontaneous
  Country: NL (occurrence: NL)
  Receive Date: 20211215
  Receipt Date: 20211215
  Transmission Date: 20220303
  Serious: Yes (Other)
  Sender: FDA-Public Use
  Company Number: None

PATIENT
  Age: 52 Year
  Sex: Female
  Weight: 80 kg

DRUGS (4)
  1. BENDAMUSTINE [Suspect]
     Active Substance: BENDAMUSTINE
     Dosage: BENDAMUSTINE INFUSION / BENDAMUSTINE FOR INFUSION NVZA
     Route: 065
     Dates: start: 20210223, end: 20210616
  2. RITUXIMAB [Suspect]
     Active Substance: RITUXIMAB
     Dosage: RITUXIMAB INFUSION / RITUXIMAB FOR INFUSION NVZA
     Route: 065
     Dates: start: 20210223, end: 20210616
  3. ESOMEPRAZOLE [Concomitant]
     Active Substance: ESOMEPRAZOLE
     Dosage: 40 MG, ESOMEPRAZOL CAPSULE MSR 40MG / BRAND NAME NOT SPECIFIED, THERAPY START AND END DATE: ASKU
  4. VALACYCLOVIR HYDROCHLORIDE [Concomitant]
     Active Substance: VALACYCLOVIR HYDROCHLORIDE
     Dosage: 500 MG, VALACICLOVIR TABLET  500MG / BRAND NAME NOT SPECIFIED, THERAPY START AND END DATE; ASKU

REACTIONS (10)
  - Hyperpyrexia [Recovered/Resolved]
  - Arthralgia [Recovering/Resolving]
  - Headache [Recovering/Resolving]
  - Nausea [Recovered/Resolved]
  - Fatigue [Recovering/Resolving]
  - Malaise [Recovered/Resolved]
  - Chills [Recovered/Resolved]
  - Injection site pain [Recovering/Resolving]
  - Vomiting [Recovered/Resolved]
  - Myalgia [Recovering/Resolving]

NARRATIVE: CASE EVENT DATE: 20211119
